FAERS Safety Report 9841402 (Version 1)
Quarter: 2014Q1

REPORT INFORMATION
  Report Type: Spontaneous
  Country: US (occurrence: None)
  Receive Date: 20140123
  Receipt Date: 20140123
  Transmission Date: 20141002
  Serious: No
  Sender: FDA-Public Use
  Company Number: None

PATIENT
  Age: 57 Year
  Sex: Male
  Weight: 90.72 kg

DRUGS (2)
  1. PRAVASTATIN [Suspect]
     Indication: BLOOD CHOLESTEROL INCREASED
     Dosage: ONE TABLET QHS/BEDTIME ORAL
     Route: 048
  2. METOPROLOL SUCCINATE [Concomitant]

REACTIONS (4)
  - Pollakiuria [None]
  - Urinary hesitation [None]
  - Renal pain [None]
  - Product substitution issue [None]
